FAERS Safety Report 10133902 (Version 1)
Quarter: 2014Q2

REPORT INFORMATION
  Report Type: Spontaneous
  Country: US (occurrence: US)
  Receive Date: 20140428
  Receipt Date: 20140428
  Transmission Date: 20141212
  Serious: Yes (Other)
  Sender: FDA-Public Use
  Company Number: US-ASTELLAS-2014US001389

PATIENT
  Sex: Female

DRUGS (1)
  1. LEXISCAN [Suspect]
     Indication: PRODUCT USED FOR UNKNOWN INDICATION
     Route: 042

REACTIONS (3)
  - Tachycardia [Unknown]
  - Bradycardia [Unknown]
  - Arrhythmia [Unknown]
